FAERS Safety Report 9642438 (Version 2)
Quarter: 2013Q4

REPORT INFORMATION
  Report Type: Spontaneous
  Country: NL (occurrence: NL)
  Receive Date: 20131024
  Receipt Date: 20131101
  Transmission Date: 20140711
  Serious: Yes (Other)
  Sender: FDA-Public Use
  Company Number: NL-AMGEN-NLDSP2013074112

PATIENT
  Age: 65 Year
  Sex: Female
  Weight: 68 kg

DRUGS (4)
  1. XGEVA [Suspect]
     Indication: METASTASES TO BONE
     Dosage: 4 UNK, Q4WK
     Route: 058
     Dates: start: 20130621
  2. CALCI CHEW [Concomitant]
     Dosage: UNK UNK, QD
     Route: 048
     Dates: start: 20130621
  3. DOCETAXEL [Concomitant]
     Indication: CHEMOTHERAPY
     Dosage: UNK
     Route: 042
     Dates: start: 20130527, end: 20130909
  4. OMEPRAZOLE [Concomitant]
     Indication: GASTROOESOPHAGEAL REFLUX DISEASE
     Dosage: 40 MG, QD
     Route: 048
     Dates: start: 20120101

REACTIONS (1)
  - Pubis fracture [Not Recovered/Not Resolved]
